FAERS Safety Report 24142744 (Version 5)
Quarter: 2025Q3

REPORT INFORMATION
  Report Type: Spontaneous
  Country: RS (occurrence: RS)
  Receive Date: 20240726
  Receipt Date: 20250803
  Transmission Date: 20251020
  Serious: Yes (Hospitalization, Other)
  Sender: ALEXION PHARMACEUTICALS
  Company Number: 2024A165550

PATIENT
  Sex: Female

DRUGS (16)
  1. FASENRA [Suspect]
     Active Substance: BENRALIZUMAB
  2. DEXAMETHASONE [Concomitant]
     Active Substance: DEXAMETHASONE
  3. PROBIOTICS NOS [Concomitant]
     Active Substance: PROBIOTICS NOS
  4. SPIRIVA [Concomitant]
     Active Substance: TIOTROPIUM BROMIDE MONOHYDRATE
  5. XYZAL [Concomitant]
     Active Substance: LEVOCETIRIZINE DIHYDROCHLORIDE
  6. CALCIUM CARBONATE\SODIUM ALGINATE\SODIUM BICARBONATE\SODIUM CARBONATE [Concomitant]
     Active Substance: CALCIUM CARBONATE\SODIUM ALGINATE\SODIUM BICARBONATE\SODIUM CARBONATE
  7. Gelorevoice [Concomitant]
  8. Kanazol [Concomitant]
  9. FOSTER [Concomitant]
     Active Substance: BECLOMETHASONE\FORMOTEROL
  10. SINGULAIR [Concomitant]
     Active Substance: MONTELUKAST SODIUM
  11. CHOLECALCIFEROL [Concomitant]
     Active Substance: CHOLECALCIFEROL
  12. TORSEMIDE [Concomitant]
     Active Substance: TORSEMIDE
  13. Gastroperidon [Concomitant]
  14. Gastroprazol [Concomitant]
  15. Momensa [Concomitant]
  16. Yanida [Concomitant]

REACTIONS (3)
  - Systemic candida [Recovering/Resolving]
  - Bronchitis [Recovering/Resolving]
  - Drug ineffective [Unknown]
